FAERS Safety Report 4556992-3 (Version None)
Quarter: 2005Q1

REPORT INFORMATION
  Report Type: 
  Country: None (occurrence: None)
  Receive Date: 20050118
  Receipt Date: 20050110
  Transmission Date: 20050727
  Serious: Yes (Hospitalization)
  Sender: FDA-Public Use
  Company Number: 2005007985

PATIENT
  Age: 86 Year
  Sex: Female

DRUGS (7)
  1. CLINDAMYCIN HYDROCHLORIDE [Suspect]
     Indication: ILL-DEFINED DISORDER
     Dosage: 450 MG (450 MG, EVERY DAY), INTRAVENOUS
     Route: 042
     Dates: start: 20031201, end: 20031221
  2. CLINDAMYCIN PHOSPHATE [Suspect]
     Indication: ILL-DEFINED DISORDER
     Dosage: 1.8 GRAM (1.8 GRAM, DAILY),INTRAVENOUS
     Route: 042
     Dates: start: 20040114, end: 20040115
  3. FUROSEMIDE [Concomitant]
  4. METOPROLOL SUCCINATE [Concomitant]
  5. METFORMIN HCL [Concomitant]
  6. GLYBURIDE [Concomitant]
  7. SIMVASTATIN [Concomitant]

REACTIONS (5)
  - CONDITION AGGRAVATED [None]
  - PETECHIAE [None]
  - PURPURA [None]
  - RASH [None]
  - WOUND [None]
